FAERS Safety Report 10469833 (Version 4)
Quarter: 2015Q3

REPORT INFORMATION
  Report Type: Report from Study
  Country: FR (occurrence: FR)
  Receive Date: 20140923
  Receipt Date: 20150731
  Transmission Date: 20151125
  Serious: Yes (Hospitalization)
  Sender: FDA-Public Use
  Company Number: FR-009507513-1405FRA002953

PATIENT
  Age: 58 Year
  Sex: Female
  Weight: 71.4 kg

DRUGS (5)
  1. PEMBROLIZUMAB. [Suspect]
     Active Substance: PEMBROLIZUMAB
     Indication: NEOPLASM MALIGNANT
     Dosage: 10 MG/KG, QOW
     Route: 042
     Dates: start: 20140428, end: 20140428
  2. DOLIPRANE [Concomitant]
     Active Substance: ACETAMINOPHEN
     Indication: NEURALGIA
     Dosage: 1 G, BID
     Route: 048
     Dates: start: 20140301, end: 20140618
  3. NEURONTIN [Concomitant]
     Active Substance: GABAPENTIN
     Indication: NEURALGIA
     Dosage: 400 MG, TID
     Route: 048
     Dates: start: 20140301, end: 20140618
  4. PEMBROLIZUMAB. [Suspect]
     Active Substance: PEMBROLIZUMAB
     Dosage: 10 MG/KG, QOW
     Route: 042
     Dates: start: 20140512
  5. VERSATIS [Concomitant]
     Active Substance: LIDOCAINE
     Indication: NEURALGIA
     Dosage: 1 PATCH, TID, FORMULATION: PATCH
     Route: 061
     Dates: start: 20140425, end: 20140618

REACTIONS (1)
  - Cytokine release syndrome [Recovered/Resolved]

NARRATIVE: CASE EVENT DATE: 20140428
